FAERS Safety Report 24169502 (Version 1)
Quarter: 2024Q3

REPORT INFORMATION
  Report Type: Spontaneous
  Country: CA (occurrence: None)
  Receive Date: 20240802
  Receipt Date: 20240802
  Transmission Date: 20241016
  Serious: Yes (Hospitalization, Other)
  Sender: ASTRAZENECA
  Company Number: 2020SF30073

PATIENT
  Age: 22 Year
  Sex: Female
  Weight: 51.2 kg

DRUGS (9)
  1. SYMBICORT [Suspect]
     Active Substance: BUDESONIDE\FORMOTEROL FUMARATE DIHYDRATE
     Indication: Product used for unknown indication
     Dosage: 2 DF TWO TIMES A DAY(200UG)
     Route: 055
  2. SYMBICORT [Suspect]
     Active Substance: BUDESONIDE\FORMOTEROL FUMARATE DIHYDRATE
     Indication: Product used for unknown indication
     Dosage: 400 UG UNKNOWN UNKNOWN
     Route: 055
     Dates: start: 20181107
  3. ADVAIR HFA [Suspect]
     Active Substance: FLUTICASONE PROPIONATE\SALMETEROL XINAFOATE
     Indication: Product used for unknown indication
     Route: 065
  4. ADVAIR HFA [Suspect]
     Active Substance: FLUTICASONE PROPIONATE\SALMETEROL XINAFOATE
     Indication: Product used for unknown indication
     Route: 065
  5. NUCALA [Suspect]
     Active Substance: MEPOLIZUMAB
     Indication: Asthma
     Route: 058
  6. ALBUTEROL SULFATE [Suspect]
     Active Substance: ALBUTEROL SULFATE
     Indication: Product used for unknown indication
     Dosage: 2 PUFF(S) QID
     Route: 065
  7. ALBUTEROL SULFATE [Suspect]
     Active Substance: ALBUTEROL SULFATE
     Indication: Product used for unknown indication
     Dosage: 100.0UG UNKNOWN
     Route: 065
  8. TIOTROPIUM [Suspect]
     Active Substance: TIOTROPIUM
     Indication: Product used for unknown indication
  9. PREDNISONE [Concomitant]
     Active Substance: PREDNISONE
     Indication: Asthma
     Route: 048
     Dates: start: 201808

REACTIONS (12)
  - Eczema [Unknown]
  - Asthma prophylaxis [Unknown]
  - Full blood count abnormal [Unknown]
  - Dyspnoea [Recovered/Resolved]
  - Dyspnoea exertional [Unknown]
  - Dyspnoea paroxysmal nocturnal [Unknown]
  - Reversible airways obstruction [Unknown]
  - Rhinitis [Unknown]
  - Sleep disorder due to a general medical condition [Recovered/Resolved]
  - Wheezing [Unknown]
  - Dyspnoea [Recovering/Resolving]
  - Therapeutic product effect incomplete [Recovering/Resolving]

NARRATIVE: CASE EVENT DATE: 20180821
